FAERS Safety Report 4926429-0 (Version None)
Quarter: 2006Q1

REPORT INFORMATION
  Report Type: 
  Country: None (occurrence: None)
  Receive Date: 20060228
  Receipt Date: 20051117
  Transmission Date: 20060701
  Serious: No
  Sender: FDA-Public Use
  Company Number: US-GLAXOSMITHKLINE-A0583157A

PATIENT
  Sex: Female

DRUGS (1)
  1. LAMICTAL [Suspect]
     Indication: EPILEPSY
     Route: 048
     Dates: start: 20050201

REACTIONS (6)
  - BALANCE DISORDER [None]
  - COORDINATION ABNORMAL [None]
  - DYSGEUSIA [None]
  - DYSPHAGIA [None]
  - DYSPHASIA [None]
  - RETCHING [None]
